FAERS Safety Report 4541062-0 (Version None)
Quarter: 2004Q4

REPORT INFORMATION
  Report Type: 
  Country: None (occurrence: None)
  Receive Date: 20041229
  Receipt Date: 20041104
  Transmission Date: 20050328
  Serious: Yes (Other)
  Sender: FDA-Public Use
  Company Number: US-NOVOPROD-240309

PATIENT
  Age: 68 Year
  Sex: Female
  Weight: 77 kg

DRUGS (9)
  1. VAGIFEM [Suspect]
     Indication: VAGINITIS ATROPHIC
     Dosage: 2 TAB, BIW
     Route: 067
     Dates: start: 20030601, end: 20041101
  2. VAGIFEM [Suspect]
     Dosage: 2 TAB, BIW
     Route: 067
     Dates: start: 20041101
  3. PENTASA [Concomitant]
     Indication: CROHN'S DISEASE
  4. CALAN [Concomitant]
     Indication: HYPERTENSION
  5. MULTIVITAMIN [Concomitant]
     Indication: PROPHYLAXIS
  6. CALCIUM                                 /N/A/ [Concomitant]
     Indication: PROPHYLAXIS
  7. TIMOLOL MALEATE [Concomitant]
     Indication: GLAUCOMA
  8. TRAVATAN [Concomitant]
     Indication: GLAUCOMA
  9. ASPIRIN [Concomitant]
     Indication: COAGULOPATHY
     Dosage: UNK, UNK

REACTIONS (2)
  - ENDOMETRIAL HYPERTROPHY [None]
  - UTERINE POLYP [None]
